FAERS Safety Report 23405742 (Version 1)
Quarter: 2024Q1

REPORT INFORMATION
  Report Type: Spontaneous
  Country: US (occurrence: None)
  Receive Date: 20240113
  Receipt Date: 20240113
  Transmission Date: 20240410
  Serious: Yes (unspecified)
  Sender: FDA-Public Use
  Company Number: None

PATIENT
  Age: 79 Year
  Sex: Male
  Weight: 62.1 kg

DRUGS (1)
  1. ERBITUX [Suspect]
     Active Substance: CETUXIMAB
     Indication: Squamous cell carcinoma of skin
     Dates: start: 20150101, end: 20150103

REACTIONS (5)
  - Drug hypersensitivity [None]
  - Infusion related reaction [None]
  - Erythema [None]
  - Sensitive skin [None]
  - Pain of skin [None]

NARRATIVE: CASE EVENT DATE: 20150130
